FAERS Safety Report 8901121 (Version 1)
Quarter: 2012Q4

REPORT INFORMATION
  Report Type: 
  Country: MQ (occurrence: FR)
  Receive Date: 20121109
  Receipt Date: 20121109
  Transmission Date: 20130627
  Serious: Yes (Other)
  Sender: FDA-Public Use
  Company Number: MQ-009507513-1207FRA000900

PATIENT
  Sex: Female

DRUGS (3)
  1. FOSAVANCE [Suspect]
     Indication: OSTEOPOROSIS
     Dosage: 1 DF, qw
     Route: 048
     Dates: start: 201203, end: 201205
  2. COVERAM [Concomitant]
     Dosage: UNK
  3. GLUCOPHAGE [Concomitant]
     Indication: DIABETES MELLITUS
     Dosage: UNK

REACTIONS (2)
  - Tooth loss [Not Recovered/Not Resolved]
  - Loose tooth [Not Recovered/Not Resolved]
